FAERS Safety Report 22334795 (Version 1)
Quarter: 2023Q2

REPORT INFORMATION
  Report Type: Spontaneous
  Country: US (occurrence: None)
  Receive Date: 20230517
  Receipt Date: 20230517
  Transmission Date: 20230721
  Serious: No
  Sender: FDA-Public Use
  Company Number: US-ROCHE-3142642

PATIENT
  Sex: Female

DRUGS (3)
  1. ACTEMRA [Suspect]
     Active Substance: TOCILIZUMAB
     Indication: Polyarthritis
     Dosage: STRENGTH 162 MG/0.9 M
     Route: 058
     Dates: start: 20220120
  2. ACTEMRA [Suspect]
     Active Substance: TOCILIZUMAB
  3. ACTEMRA [Suspect]
     Active Substance: TOCILIZUMAB

REACTIONS (6)
  - Ill-defined disorder [Unknown]
  - Pain [Unknown]
  - Inflammation [Unknown]
  - Pulpitis dental [Unknown]
  - Gait disturbance [Unknown]
  - Osteitis [Unknown]
